FAERS Safety Report 23259028 (Version 1)
Quarter: 2023Q4

REPORT INFORMATION
  Report Type: Spontaneous
  Country: SE (occurrence: SE)
  Receive Date: 20231204
  Receipt Date: 20231204
  Transmission Date: 20240110
  Serious: Yes (Hospitalization)
  Sender: FDA-Public Use
  Company Number: None

PATIENT
  Age: 26 Year
  Sex: Female
  Weight: 57 kg

DRUGS (1)
  1. YASMIN [Suspect]
     Active Substance: DROSPIRENONE\ETHINYL ESTRADIOL
     Indication: Contraception
     Dosage: 1 TABLETT DAGLIGEN
     Route: 048
     Dates: start: 20190801, end: 20230201

REACTIONS (1)
  - Lichen sclerosus [Recovered/Resolved]

NARRATIVE: CASE EVENT DATE: 20190902
